FAERS Safety Report 19213039 (Version 1)
Quarter: 2021Q2

REPORT INFORMATION
  Report Type: Spontaneous
  Country: CN (occurrence: CN)
  Receive Date: 20210504
  Receipt Date: 20210504
  Transmission Date: 20210717
  Serious: Yes (Hospitalization)
  Sender: FDA-Public Use
  Company Number: CN-BAXTER-2021BAX009207

PATIENT
  Age: 62 Year
  Sex: Female
  Weight: 53 kg

DRUGS (10)
  1. UROMITEXAN [Suspect]
     Active Substance: MESNA
     Indication: PRODUCT USED FOR UNKNOWN INDICATION
     Dosage: MESNA 1.2G + 0.9% SODIUM CHLORIDE 500ML
     Route: 065
     Dates: start: 20210319, end: 20210319
  2. 0.9% SODIUM CHLORIDE INJECTION [Suspect]
     Active Substance: SODIUM CHLORIDE
     Indication: MEDICATION DILUTION
     Dosage: MESNA 1.2G + 0.9% SODIUM CHLORIDE 500ML
     Route: 065
     Dates: start: 20210319, end: 20210319
  3. VINDESINE SULFATE [Suspect]
     Active Substance: VINDESINE SULFATE
     Indication: ACUTE LYMPHOCYTIC LEUKAEMIA
     Dosage: VINDESINE SULFATE 3 MG + 0.9% SODIUM CHLORIDE 20 ML
     Route: 042
     Dates: start: 20210319, end: 20210319
  4. SODIUM CHLORIDE. [Suspect]
     Active Substance: SODIUM CHLORIDE
     Indication: MEDICATION DILUTION
     Dosage: ETOPOSIDE 0.15 G + 0.9% SODIUM CHLORIDE 250ML
     Route: 041
     Dates: start: 20210319, end: 20210322
  5. CYTARABINE HYDROCHLORIDE [Suspect]
     Active Substance: CYTARABINE HYDROCHLORIDE
     Indication: ACUTE LYMPHOCYTIC LEUKAEMIA
     Dosage: CYTARABINE HYDROCHLORIDE 0.15 G + 0.9% SODIUM CHLORIDE 500 ML
     Route: 041
     Dates: start: 20210319, end: 20210325
  6. ENDOXAN [Suspect]
     Active Substance: CYCLOPHOSPHAMIDE
     Indication: ACUTE LYMPHOCYTIC LEUKAEMIA
     Dosage: ENDOXAN 1.2 G + 0.9% SODIUM CHLORIDE 500 ML
     Route: 041
     Dates: start: 20210319, end: 20210319
  7. ETOPOSIDE. [Suspect]
     Active Substance: ETOPOSIDE
     Indication: ACUTE LYMPHOCYTIC LEUKAEMIA
     Dosage: ETOPOSIDE 0.15 G + 0.9% SODIUM CHLORIDE 250ML
     Route: 041
     Dates: start: 20210319, end: 20210322
  8. SODIUM CHLORIDE. [Suspect]
     Active Substance: SODIUM CHLORIDE
     Dosage: ENDOXAN 1.2 G + 0.9% SODIUM CHLORIDE 500 ML
     Route: 041
     Dates: start: 20210319, end: 20210319
  9. SODIUM CHLORIDE. [Suspect]
     Active Substance: SODIUM CHLORIDE
     Indication: MEDICATION DILUTION
     Dosage: VINDESINE SULFATE 3 MG + 0.9% SODIUM CHLORIDE 20 ML
     Route: 042
     Dates: start: 20210319, end: 20210319
  10. SODIUM CHLORIDE. [Suspect]
     Active Substance: SODIUM CHLORIDE
     Dosage: CYTARABINE HYDROCHLORIDE 0.15 G + 0.9% SODIUM CHLORIDE 500 ML
     Route: 041
     Dates: start: 20210319, end: 20210325

REACTIONS (1)
  - Myelosuppression [Recovering/Resolving]

NARRATIVE: CASE EVENT DATE: 20210330
